FAERS Safety Report 20097091 (Version 1)
Quarter: 2021Q4

REPORT INFORMATION
  Report Type: Report from Study
  Country: US (occurrence: US)
  Receive Date: 20211122
  Receipt Date: 20211122
  Transmission Date: 20220304
  Serious: Yes (Other)
  Sender: FDA-Public Use
  Company Number: US-NOVARTISPH-NVSC2020US360518

PATIENT
  Sex: Male

DRUGS (1)
  1. LUTATHERA [Suspect]
     Active Substance: LUTETIUM OXODOTREOTIDE LU-177
     Indication: Neuroendocrine tumour
     Dosage: UNK
     Route: 065
     Dates: start: 20200115

REACTIONS (5)
  - Hepatitis C [Unknown]
  - Transaminases increased [Unknown]
  - Blood lactate dehydrogenase increased [Unknown]
  - Essential hypertension [Unknown]
  - Off label use [Unknown]
